FAERS Safety Report 23035499 (Version 6)
Quarter: 2024Q1

REPORT INFORMATION
  Report Type: Spontaneous
  Country: JP (occurrence: JP)
  Receive Date: 20231006
  Receipt Date: 20240321
  Transmission Date: 20240410
  Serious: Yes (Hospitalization, Other)
  Sender: FDA-Public Use
  Company Number: None

PATIENT
  Age: 70 Year
  Sex: Male
  Weight: 59 kg

DRUGS (5)
  1. BOTOX [Suspect]
     Active Substance: ONABOTULINUMTOXINA
     Indication: Muscle spasms
     Dosage: TIME INTERVAL: AS NECESSARY: 600 IU
     Route: 030
     Dates: start: 20230905, end: 20230905
  2. BOTOX [Suspect]
     Active Substance: ONABOTULINUMTOXINA
     Indication: Muscle spasms
     Dosage: TIME INTERVAL: AS NECESSARY: 600 IU
     Route: 030
  3. BOTOX [Suspect]
     Active Substance: ONABOTULINUMTOXINA
     Indication: Muscle spasms
     Dosage: TIME INTERVAL: AS NECESSARY
     Route: 030
  4. CLOPIDOGREL BISULFATE [Concomitant]
     Active Substance: CLOPIDOGREL BISULFATE
     Indication: Product used for unknown indication
     Dosage: 75 MG
     Route: 048
  5. HERBALS [Concomitant]
     Active Substance: HERBALS
     Indication: Product used for unknown indication
     Dosage: 25 G
     Route: 048

REACTIONS (8)
  - Epilepsy [Unknown]
  - Decreased gait velocity [Unknown]
  - Muscular weakness [Unknown]
  - Feeling abnormal [Recovering/Resolving]
  - Condition aggravated [Recovering/Resolving]
  - Hospitalisation [Unknown]
  - Anxiety [Unknown]
  - Muscle spasms [Recovering/Resolving]

NARRATIVE: CASE EVENT DATE: 20230101
